FAERS Safety Report 16381981 (Version 9)
Quarter: 2022Q2

REPORT INFORMATION
  Report Type: Spontaneous
  Country: JP (occurrence: JP)
  Receive Date: 20190603
  Receipt Date: 20220523
  Transmission Date: 20220721
  Serious: Yes (Death, Hospitalization, Other)
  Sender: FDA-Public Use
  Company Number: JP-ONO-2019JP019336

PATIENT
  Age: 70 Year
  Sex: Male
  Weight: 55.5 kg

DRUGS (18)
  1. PARSABIV [Suspect]
     Active Substance: ETELCALCETIDE HYDROCHLORIDE
     Indication: Hyperparathyroidism secondary
     Dosage: 5 MG, Q56H
     Route: 010
     Dates: start: 20180717, end: 20181117
  2. PARSABIV [Suspect]
     Active Substance: ETELCALCETIDE HYDROCHLORIDE
     Dosage: 2.5 MG, Q56H
     Route: 010
     Dates: start: 20181120, end: 20210105
  3. PARSABIV [Suspect]
     Active Substance: ETELCALCETIDE HYDROCHLORIDE
     Dosage: 2.5 MG, Q56H
     Route: 010
     Dates: start: 20210107
  4. DARBEPOETIN ALFA [Concomitant]
     Active Substance: DARBEPOETIN ALFA
     Dosage: 40 MICROGRAM, QWK
     Route: 051
     Dates: start: 20190815, end: 20191017
  5. ROCALTROL [Concomitant]
     Active Substance: CALCITRIOL
     Dosage: 0.25 UG, EVERYDAY (UNTIL 2018/08/27)
     Route: 048
  6. ROCALTROL [Concomitant]
     Active Substance: CALCITRIOL
     Dosage: 0.5 UG, EVERYDAY
     Route: 048
     Dates: start: 20180828, end: 20190121
  7. ROCALTROL [Concomitant]
     Active Substance: CALCITRIOL
     Dosage: 0.25 UG, EVERYDAY
     Route: 048
     Dates: start: 20190122, end: 20190218
  8. FERRIC CITRATE ANHYDROUS [Concomitant]
     Active Substance: FERRIC CITRATE ANHYDROUS
     Dosage: 2250 MG, EVERYDAY
     Route: 048
  9. ERYTHROPOIETIN [Concomitant]
     Active Substance: ERYTHROPOIETIN
     Dosage: 4500 IU, QW
     Route: 051
     Dates: end: 20180922
  10. ERYTHROPOIETIN [Concomitant]
     Active Substance: ERYTHROPOIETIN
     Dosage: 9000 IU, QW
     Route: 051
     Dates: start: 20180925, end: 20181023
  11. ERYTHROPOIETIN [Concomitant]
     Active Substance: ERYTHROPOIETIN
     Dosage: 6000 IU, QW
     Route: 051
     Dates: start: 20181027, end: 20181124
  12. ERYTHROPOIETIN [Concomitant]
     Active Substance: ERYTHROPOIETIN
     Dosage: 4500 IU, QW
     Route: 051
     Dates: start: 20181127, end: 20190518
  13. ERYTHROPOIETIN [Concomitant]
     Active Substance: ERYTHROPOIETIN
     Dosage: 3000 IU, QW
     Route: 051
     Dates: start: 20190521, end: 20190813
  14. ERYTHROPOIETIN [Concomitant]
     Active Substance: ERYTHROPOIETIN
     Dosage: 6000 IU, QW
     Route: 051
     Dates: start: 20191022, end: 20191109
  15. ERYTHROPOIETIN [Concomitant]
     Active Substance: ERYTHROPOIETIN
     Dosage: 4500 IU, QW
     Route: 051
     Dates: start: 20191112, end: 20200516
  16. ERYTHROPOIETIN [Concomitant]
     Active Substance: ERYTHROPOIETIN
     Dosage: 9000 IU, QW
     Route: 051
     Dates: start: 20200519
  17. ALFAROL [Concomitant]
     Active Substance: ALFACALCIDOL
     Dosage: 0.25 MICROGRAM, QD
     Route: 048
     Dates: start: 20190219, end: 20200720
  18. ALFAROL [Concomitant]
     Active Substance: ALFACALCIDOL
     Dosage: 0.5 MICROGRAM, QD
     Route: 048
     Dates: start: 20200721

REACTIONS (7)
  - Death [Fatal]
  - Spinal compression fracture [Unknown]
  - Fall [Unknown]
  - Upper limb fracture [Recovering/Resolving]
  - Fall [Unknown]
  - Cholelithiasis [Recovering/Resolving]
  - Shunt stenosis [Recovered/Resolved]

NARRATIVE: CASE EVENT DATE: 20180921
